FAERS Safety Report 5225763-7 (Version None)
Quarter: 2007Q1

REPORT INFORMATION
  Report Type: 
  Country: None (occurrence: None)
  Receive Date: 20070131
  Receipt Date: 20070131
  Transmission Date: 20070707
  Serious: Yes (Other)
  Sender: FDA-Public Use
  Company Number: None

PATIENT
  Age: 21 Year
  Sex: Male
  Weight: 105 kg

DRUGS (1)
  1. FLUOXETINE HCL [Suspect]
     Indication: ANXIETY DISORDER
     Dosage: 40MG ONCE DAILY PO
     Route: 048
     Dates: start: 20050607, end: 20060324

REACTIONS (20)
  - AGITATION [None]
  - AKATHISIA [None]
  - ANGER [None]
  - ANXIETY [None]
  - COGNITIVE DISORDER [None]
  - CONDITION AGGRAVATED [None]
  - DISINHIBITION [None]
  - DISTURBANCE IN SEXUAL AROUSAL [None]
  - DRUG WITHDRAWAL SYNDROME [None]
  - EJACULATION DELAYED [None]
  - ERECTILE DYSFUNCTION [None]
  - HOSTILITY [None]
  - HYPERHIDROSIS [None]
  - HYPOMANIA [None]
  - ILL-DEFINED DISORDER [None]
  - IMPULSE-CONTROL DISORDER [None]
  - INSOMNIA [None]
  - MANIA [None]
  - ORGASMIC SENSATION DECREASED [None]
  - SEXUAL DYSFUNCTION [None]
